FAERS Safety Report 6546481-9 (Version None)
Quarter: 2010Q1

REPORT INFORMATION
  Report Type: 
  Country: None (occurrence: None)
  Receive Date: 20100114
  Receipt Date: 20091027
  Transmission Date: 20100710
  Serious: No
  Sender: FDA-Public Use
  Company Number: 2009BM000279

PATIENT
  Sex: Female

DRUGS (7)
  1. KUVAN [Suspect]
     Indication: PHENYLKETONURIA
     Dosage: 1200 MG;QD;PO
     Route: 048
     Dates: start: 20091016
  2. PREVACID [Concomitant]
  3. LEVONORGESTREL [Concomitant]
  4. AZELASTINE HCL [Concomitant]
  5. CITALOPRAM HYDROBROMIDE [Concomitant]
  6. TREXIMET [Concomitant]
  7. CLONAZEPAM [Concomitant]

REACTIONS (1)
  - GASTROOESOPHAGEAL REFLUX DISEASE [None]
